FAERS Safety Report 15145052 (Version 7)
Quarter: 2020Q2

REPORT INFORMATION
  Report Type: Report from Study
  Country: US (occurrence: US)
  Receive Date: 20180713
  Receipt Date: 20200506
  Transmission Date: 20200713
  Serious: Yes (Death, Hospitalization)
  Sender: FDA-Public Use
  Company Number: US-ACTELION-A-US2018-175169

PATIENT
  Age: 83 Year
  Sex: Male

DRUGS (25)
  1. IPRATROPIUM [Concomitant]
     Active Substance: IPRATROPIUM
     Dosage: .03 %
     Dates: start: 20190329
  2. MIDODRINE [Concomitant]
     Active Substance: MIDODRINE
     Dosage: 10 MG
     Dates: start: 20190105
  3. ALLOPURINOL. [Concomitant]
     Active Substance: ALLOPURINOL
  4. K TAB [Concomitant]
  5. METOPROLOL. [Concomitant]
     Active Substance: METOPROLOL
  6. FLUDROCORTISON [Concomitant]
     Active Substance: FLUDROCORTISONE
     Dosage: 0.1 UNK
     Dates: start: 20190124
  7. METOLAZONE. [Concomitant]
     Active Substance: METOLAZONE
  8. METOPROLOLTARTRAT [Concomitant]
     Dosage: 25 MG
     Dates: start: 20190505
  9. ESCITALOPRAM [Concomitant]
     Active Substance: ESCITALOPRAM OXALATE
  10. BETHANECHOL [Concomitant]
     Active Substance: BETHANECHOL
     Dosage: 25 MG
     Dates: start: 20190212
  11. TORSEMIDE. [Concomitant]
     Active Substance: TORSEMIDE
     Dosage: 100 UNK
     Dates: start: 20190122
  12. FLURA-DROPS [Concomitant]
     Active Substance: SODIUM FLUORIDE
  13. PROSCAR [Concomitant]
     Active Substance: FINASTERIDE
  14. ATORVASTATIN [Concomitant]
     Active Substance: ATORVASTATIN
     Dosage: 80 MG
     Dates: start: 20190311
  15. CALCITRIOL. [Concomitant]
     Active Substance: CALCITRIOL
     Dosage: 0.25 MCG
     Dates: start: 20160826
  16. OPSUMIT [Suspect]
     Active Substance: MACITENTAN
     Indication: PULMONARY ARTERIAL HYPERTENSION
     Dosage: 10 MG, QD
     Route: 048
     Dates: start: 20160718, end: 20200102
  17. FUROSEMIDE. [Concomitant]
     Active Substance: FUROSEMIDE
  18. HUMALOG [Concomitant]
     Active Substance: INSULIN LISPRO
  19. ASPIRIN 81 [Concomitant]
     Active Substance: ASPIRIN
  20. CALCIFEROL [Concomitant]
  21. FINASTERIDE. [Concomitant]
     Active Substance: FINASTERIDE
     Dosage: 5 MG
     Dates: start: 20190218
  22. LANTUS [Concomitant]
     Active Substance: INSULIN GLARGINE
     Dosage: 100 /ML
     Dates: start: 20190207
  23. MONTELUKAST [Concomitant]
     Active Substance: MONTELUKAST SODIUM
     Dosage: 10 MG
     Dates: start: 20190329
  24. VITAMIN D [Concomitant]
     Active Substance: VITAMIN D NOS
     Dosage: UNK
     Dates: start: 20190207
  25. SPIRONOLACTONE. [Concomitant]
     Active Substance: SPIRONOLACTONE
     Dosage: 50 MG
     Dates: start: 20190218

REACTIONS (8)
  - Cardiac disorder [Recovered/Resolved]
  - Urinary tract infection [Recovered/Resolved]
  - Cardiac failure congestive [Fatal]
  - Cardiac arrest [Fatal]
  - Stress [Recovered/Resolved]
  - Renal disorder [Not Recovered/Not Resolved]
  - Malaise [Recovered/Resolved]
  - Diabetes mellitus [Not Recovered/Not Resolved]

NARRATIVE: CASE EVENT DATE: 20190711
